FAERS Safety Report 6969362-5 (Version None)
Quarter: 2010Q3

REPORT INFORMATION
  Report Type: 
  Country: None (occurrence: None)
  Receive Date: 20100907
  Receipt Date: 20091022
  Transmission Date: 20110219
  Serious: Yes (Hospitalization, Other)
  Sender: FDA-Public Use
  Company Number: US-ABBOTT-09P-163-0604411-00

PATIENT
  Sex: Female
  Weight: 92.616 kg

DRUGS (3)
  1. TRICOR [Suspect]
     Indication: BLOOD TRIGLYCERIDES INCREASED
     Dates: start: 20060101
  2. TRICOR [Suspect]
     Route: 048
  3. TRICOR [Suspect]
     Route: 048
     Dates: end: 20091021

REACTIONS (6)
  - BLOOD TRIGLYCERIDES INCREASED [None]
  - GALLBLADDER OPERATION [None]
  - INTERNATIONAL NORMALISED RATIO INCREASED [None]
  - PROTHROMBIN LEVEL INCREASED [None]
  - SPINAL FUSION SURGERY [None]
  - TYPE 2 DIABETES MELLITUS [None]
